FAERS Safety Report 4324558-6 (Version None)
Quarter: 2004Q1

REPORT INFORMATION
  Report Type: 
  Country: None (occurrence: None)
  Receive Date: 20040326
  Receipt Date: 20040316
  Transmission Date: 20041129
  Serious: Yes (Hospitalization)
  Sender: FDA-Public Use
  Company Number: PHRM2004FR01222

PATIENT
  Age: 58 Year
  Sex: Female

DRUGS (4)
  1. TAREG [Suspect]
     Indication: HYPERTENSION
     Dosage: 1 DF, QD
     Route: 048
     Dates: end: 20040207
  2. ZOLOFT [Suspect]
     Indication: DEPRESSION
     Dosage: 50 MG, QD
     Route: 048
     Dates: start: 20040109, end: 20040207
  3. LEVOTHYROXINE SODIUM [Concomitant]
     Indication: HYPOTHYROIDISM
     Dosage: 112.5 UG, QD
     Route: 048
  4. OESCLIM [Concomitant]
     Dosage: 37.5 UG, QW2
     Route: 062

REACTIONS (23)
  - ABDOMINAL PAIN UPPER [None]
  - ASTHENIA [None]
  - BLOOD FIBRINOGEN INCREASED [None]
  - C-REACTIVE PROTEIN INCREASED [None]
  - CALCULUS URINARY [None]
  - CHEST PAIN [None]
  - CYTOLYTIC HEPATITIS [None]
  - DIARRHOEA [None]
  - ESCHERICHIA URINARY TRACT INFECTION [None]
  - HEPATIC ENZYME INCREASED [None]
  - HEPATIC FAILURE [None]
  - HEPATOCELLULAR DAMAGE [None]
  - HYPONATRAEMIA [None]
  - INFLAMMATION [None]
  - LOSS OF CONSCIOUSNESS [None]
  - NAUSEA [None]
  - NEUTROPHILIA [None]
  - PROTHROMBIN LEVEL DECREASED [None]
  - PYELONEPHRITIS [None]
  - PYREXIA [None]
  - SYNCOPE VASOVAGAL [None]
  - URINARY TRACT INFECTION [None]
  - VOMITING [None]
